FAERS Safety Report 5527395-X (Version None)
Quarter: 2007Q4

REPORT INFORMATION
  Report Type: 
  Country: None (occurrence: None)
  Receive Date: 20071123
  Receipt Date: 20071119
  Transmission Date: 20080405
  Serious: Yes (Death, Other)
  Sender: FDA-Public Use
  Company Number: 163-21880-07111087

PATIENT
  Sex: Male

DRUGS (1)
  1. REVLIMID [Suspect]
     Indication: MULTIPLE MYELOMA
     Dosage: 25 MG, QD ORAL
     Route: 048
     Dates: start: 20071101, end: 20071101

REACTIONS (4)
  - ASTHENIA [None]
  - CEREBRAL THROMBOSIS [None]
  - RENAL FAILURE [None]
  - THROMBOSIS [None]
